FAERS Safety Report 4815345-0 (Version None)
Quarter: 2005Q4

REPORT INFORMATION
  Report Type: 
  Country: None (occurrence: None)
  Receive Date: 20051027
  Receipt Date: 20051014
  Transmission Date: 20060501
  Serious: Yes (Hospitalization, Other)
  Sender: FDA-Public Use
  Company Number: KII-2005-0019107

PATIENT
  Age: 49 Year
  Sex: Female

DRUGS (9)
  1. OXYCONTIN [Suspect]
     Indication: DRUG USE FOR UNKNOWN INDICATION
     Dosage: ORAL
     Route: 048
  2. ETHANOL (ETHANOL) [Suspect]
     Indication: DRUG USE FOR UNKNOWN INDICATION
     Dosage: ORAL
     Route: 048
  3. ANTIPSYCHOTICS [Suspect]
     Indication: DRUG USE FOR UNKNOWN INDICATION
     Dosage: ORAL
     Route: 048
  4. TRAZODONE HCL [Suspect]
     Indication: DRUG USE FOR UNKNOWN INDICATION
     Dosage: ORAL
     Route: 048
  5. ISOSORBIDE (ISOSORBIDE) [Suspect]
     Indication: DRUG USE FOR UNKNOWN INDICATION
     Dosage: ORAL
     Route: 048
  6. PROTON PUMP INHIBITOR [Suspect]
     Indication: DRUG USE FOR UNKNOWN INDICATION
     Dosage: ORAL
     Route: 048
  7. GASTROINTESTINAL PREPARATION [Suspect]
     Indication: DRUG USE FOR UNKNOWN INDICATION
  8. PHENCYCLIDINE (PHENCYCLIDINE) [Suspect]
     Indication: DRUG USE FOR UNKNOWN INDICATION
  9. BENZODIAZEPINE DERIVATIVES [Suspect]
     Indication: DRUG USE FOR UNKNOWN INDICATION

REACTIONS (13)
  - AGGRESSION [None]
  - AGITATION [None]
  - ASPIRATION [None]
  - BLOOD CREATINE PHOSPHOKINASE INCREASED [None]
  - BODY TEMPERATURE DECREASED [None]
  - COMA [None]
  - DRUG ABUSER [None]
  - DRUG SCREEN POSITIVE [None]
  - HYPERTENSION [None]
  - MULTIPLE DRUG OVERDOSE [None]
  - SINUS TACHYCARDIA [None]
  - SOMNOLENCE [None]
  - VOMITING [None]
